FAERS Safety Report 20092277 (Version 2)
Quarter: 2021Q4

REPORT INFORMATION
  Report Type: Spontaneous
  Country: CN (occurrence: CN)
  Receive Date: 20211119
  Receipt Date: 20211125
  Transmission Date: 20220303
  Serious: No
  Sender: FDA-Public Use
  Company Number: CN-NOVARTISPH-NVSC2021CN259611

PATIENT
  Age: 45 Year
  Sex: Male
  Weight: 77 kg

DRUGS (1)
  1. SECUKINUMAB [Suspect]
     Active Substance: SECUKINUMAB
     Indication: Psoriasis
     Dosage: 300 MG, UNKNOWN
     Route: 042
     Dates: start: 20210301

REACTIONS (3)
  - Tonsillitis [Recovering/Resolving]
  - Oral herpes [Not Recovered/Not Resolved]
  - Incorrect route of product administration [Unknown]

NARRATIVE: CASE EVENT DATE: 20211001
